FAERS Safety Report 4378123-5 (Version None)
Quarter: 2004Q2

REPORT INFORMATION
  Report Type: 
  Country: None (occurrence: None)
  Receive Date: 20040616
  Receipt Date: 20040607
  Transmission Date: 20050107
  Serious: Yes (Other)
  Sender: FDA-Public Use
  Company Number: PHBS2004BR07451

PATIENT
  Age: 24 Year
  Sex: Male
  Weight: 75 kg

DRUGS (1)
  1. VOLTAREN [Suspect]
     Indication: BACK PAIN
     Route: 030

REACTIONS (1)
  - LESION OF SCIATIC NERVE [None]
